FAERS Safety Report 10334105 (Version 2)
Quarter: 2014Q3

REPORT INFORMATION
  Report Type: Spontaneous
  Country: ES (occurrence: ES)
  Receive Date: 20140723
  Receipt Date: 20140723
  Transmission Date: 20150326
  Serious: Yes (Other)
  Sender: FDA-Public Use
  Company Number: ES-AMGEN INC.-ESPSP2014053131

PATIENT
  Age: 74 Year
  Sex: Female

DRUGS (5)
  1. PROLIA [Suspect]
     Active Substance: DENOSUMAB
     Indication: OSTEOPOROSIS
     Dosage: 1 DF, UNK
     Route: 065
     Dates: start: 20140402
  2. EMCONCOR COR [Concomitant]
     Active Substance: BISOPROLOL
     Indication: CARDIAC DISORDER
     Dosage: 2.5 MG, UNK
  3. STATIN                             /00036501/ [Concomitant]
     Indication: ANGIOPATHY
     Dosage: UNK
  4. CRESTOR [Concomitant]
     Active Substance: ROSUVASTATIN CALCIUM
     Indication: BLOOD CHOLESTEROL
     Dosage: 5 MG, UNK
  5. EUTIROX [Concomitant]
     Active Substance: LEVOTHYROXINE SODIUM
     Indication: THYROID DISORDER
     Dosage: 25 MG, UNK

REACTIONS (10)
  - Joint dislocation [Unknown]
  - Dysstasia [Unknown]
  - Groin pain [Not Recovered/Not Resolved]
  - Pain in extremity [Not Recovered/Not Resolved]
  - Arthralgia [Not Recovered/Not Resolved]
  - Macule [Unknown]
  - Inflammation [Unknown]
  - Visual impairment [Unknown]
  - Sensory loss [Unknown]
  - Pruritus [Unknown]

NARRATIVE: CASE EVENT DATE: 20140405
